FAERS Safety Report 4728622-9 (Version None)
Quarter: 2005Q3

REPORT INFORMATION
  Report Type: 
  Country: None (occurrence: None)
  Receive Date: 20050729
  Receipt Date: 20050531
  Transmission Date: 20060218
  Serious: Yes (Life-Threatening, Hospitalization, Disabling, Other)
  Sender: FDA-Public Use
  Company Number: FR-AMGEN-UK136707

PATIENT
  Sex: Female
  Weight: 45 kg

DRUGS (10)
  1. MIMPARA [Suspect]
     Indication: DRUG USE FOR UNKNOWN INDICATION
     Route: 048
     Dates: start: 20050419
  2. COZAAR [Concomitant]
     Route: 065
     Dates: start: 20040718
  3. ELISOR [Concomitant]
     Route: 065
     Dates: start: 20040410
  4. CALCIUM CARBONATE [Concomitant]
     Route: 065
     Dates: start: 20040716
  5. FORLAX [Concomitant]
     Route: 065
     Dates: start: 20040618
  6. ASPIRIN [Concomitant]
     Route: 065
     Dates: start: 20040410
  7. LASIX [Concomitant]
     Route: 065
     Dates: start: 20010725
  8. PLAVIX [Concomitant]
     Route: 065
     Dates: start: 20040410
  9. RENAGEL [Concomitant]
     Route: 065
     Dates: start: 20040607
  10. SECTRAL [Concomitant]
     Route: 065
     Dates: start: 20040211

REACTIONS (8)
  - ARTERIOVENOUS FISTULA SITE COMPLICATION [None]
  - BACTERAEMIA [None]
  - HAEMATOTOXICITY [None]
  - HYPOTENSION [None]
  - LEUKOCYTOSIS [None]
  - SHOCK [None]
  - TOXIC EPIDERMAL NECROLYSIS [None]
  - TOXIC SKIN ERUPTION [None]
